FAERS Safety Report 6588091-3 (Version None)
Quarter: 2010Q1

REPORT INFORMATION
  Report Type: 
  Country: None (occurrence: None)
  Receive Date: 20100218
  Receipt Date: 20100209
  Transmission Date: 20100710
  Serious: Yes (Other)
  Sender: FDA-Public Use
  Company Number: PHHY2010BE06938

PATIENT
  Sex: Male

DRUGS (3)
  1. ZOMETA [Suspect]
     Indication: RENAL CANCER
     Dosage: UNK
  2. CORTICOSTEROIDS [Concomitant]
     Dosage: UNK
  3. SUTENT [Concomitant]
     Dosage: UNK

REACTIONS (2)
  - BONE DISORDER [None]
  - OSTEONECROSIS [None]
